FAERS Safety Report 24891031 (Version 1)
Quarter: 2025Q1

REPORT INFORMATION
  Report Type: Spontaneous
  Country: US (occurrence: None)
  Receive Date: 20250127
  Receipt Date: 20250127
  Transmission Date: 20250409
  Serious: Yes (Disabling, Other)
  Sender: FDA-CTU
  Company Number: None

PATIENT
  Age: 53 Year
  Sex: Male
  Weight: 88.65 kg

DRUGS (1)
  1. SUMATRIPTAN [Suspect]
     Active Substance: SUMATRIPTAN
     Indication: Migraine
     Route: 048
     Dates: start: 20250123, end: 20250123

REACTIONS (10)
  - Hyperhidrosis [None]
  - Dizziness [None]
  - Gait inability [None]
  - Dysstasia [None]
  - Vertigo [None]
  - Dizziness [None]
  - Vision blurred [None]
  - Visual acuity reduced [None]
  - Fear [None]
  - Impaired driving ability [None]

NARRATIVE: CASE EVENT DATE: 20250123
